FAERS Safety Report 12637343 (Version 1)
Quarter: 2016Q3

REPORT INFORMATION
  Report Type: Spontaneous
  Country: US (occurrence: US)
  Receive Date: 20160809
  Receipt Date: 20160809
  Transmission Date: 20161109
  Serious: No
  Sender: FDA-Public Use
  Company Number: US-BEH-2015056945

PATIENT
  Sex: Female
  Weight: 139 kg

DRUGS (31)
  1. FLUOXETINE [Concomitant]
     Active Substance: FLUOXETINE HYDROCHLORIDE
  2. NORMAL SALINE [Concomitant]
     Active Substance: SODIUM CHLORIDE
  3. DICLOFENAC SODIUM. [Concomitant]
     Active Substance: DICLOFENAC SODIUM
  4. VITAMIN D3 [Concomitant]
     Active Substance: CHOLECALCIFEROL
  5. MAGNESIUM [Concomitant]
     Active Substance: MAGNESIUM
  6. SELENIUM [Concomitant]
     Active Substance: SELENIUM
  7. NORVASC [Concomitant]
     Active Substance: AMLODIPINE BESYLATE
  8. DEXAMETHASONE. [Concomitant]
     Active Substance: DEXAMETHASONE
  9. FLOVENT [Concomitant]
     Active Substance: FLUTICASONE PROPIONATE
  10. VITAMIN B12 [Concomitant]
     Active Substance: CYANOCOBALAMIN
  11. CLONIDINE. [Concomitant]
     Active Substance: CLONIDINE
  12. HCTZ [Concomitant]
     Active Substance: HYDROCHLOROTHIAZIDE
  13. RESTORIL [Concomitant]
     Active Substance: TEMAZEPAM
  14. ZINC PICOLINATE [Concomitant]
     Active Substance: ZINC PICOLINATE
  15. SODIUM CHLORIDE. [Concomitant]
     Active Substance: SODIUM CHLORIDE
  16. LISINOPRIL. [Concomitant]
     Active Substance: LISINOPRIL
  17. KLONOPIN [Concomitant]
     Active Substance: CLONAZEPAM
  18. EPIPEN [Concomitant]
     Active Substance: EPINEPHRINE
  19. VITAMIN C [Concomitant]
     Active Substance: ASCORBIC ACID
  20. PROBIOTIC [Concomitant]
     Active Substance: PROBIOTICS NOS
  21. DIPHENHYDRAMINE. [Concomitant]
     Active Substance: DIPHENHYDRAMINE
  22. PROZAC [Concomitant]
     Active Substance: FLUOXETINE HYDROCHLORIDE
  23. MAXAIR [Concomitant]
     Active Substance: PIRBUTEROL ACETATE
  24. VITAMIN A [Concomitant]
     Active Substance: VITAMIN A
  25. PRIVIGEN [Suspect]
     Active Substance: HUMAN IMMUNOGLOBULIN G
     Indication: IMMUNODEFICIENCY COMMON VARIABLE
     Route: 042
  26. SALINE MIST [Concomitant]
     Active Substance: SODIUM CHLORIDE
  27. GLUCOSAMINE AND CHONDROITIN [Concomitant]
     Active Substance: CHONDROITIN SULFATE (BOVINE)\GLUCOSAMINE HYDROCHLORIDE
  28. FLONASE [Concomitant]
     Active Substance: FLUTICASONE PROPIONATE
  29. SUPRAX [Concomitant]
     Active Substance: CEFIXIME
  30. DAILY MULTIPLE VITAMIN [Concomitant]
  31. SUPER B COMPLEX [Concomitant]
     Active Substance: CYANOCOBALAMIN\DEXPANTHENOL\NIACINAMIDE\PYRIDOXINE HYDROCHLORIDE\RIBOFLAVIN 5^-PHOSPHATE SODIUM\THIAMINE HYDROCHLORIDE\VITAMIN B COMPLEX

REACTIONS (1)
  - Sinusitis [Unknown]
